FAERS Safety Report 9184844 (Version 1)
Quarter: 2013Q1

REPORT INFORMATION
  Report Type: Spontaneous
  Country: US (occurrence: US)
  Receive Date: 20130325
  Receipt Date: 20130325
  Transmission Date: 20140127
  Serious: No
  Sender: FDA-Public Use
  Company Number: US-BRISTOL-MYERS SQUIBB COMPANY-16496341

PATIENT
  Age: 69 Year
  Sex: Male
  Weight: 80.27 kg

DRUGS (8)
  1. ERBITUX [Suspect]
     Indication: LUNG NEOPLASM MALIGNANT
     Dosage: 2ND DOSE WAS HALF OF THE FIRST DOSE AND TOOK 1 HOUR
     Dates: start: 201203
  2. METFORMIN [Concomitant]
  3. JANUVIA [Concomitant]
  4. NEXIUM [Concomitant]
  5. GLUCOSAMINE [Concomitant]
  6. SALAGEN [Concomitant]
  7. ASPIRIN [Concomitant]
  8. BENADRYL [Concomitant]
     Indication: PREMEDICATION

REACTIONS (1)
  - Rash pruritic [Unknown]
